FAERS Safety Report 9223066 (Version 1)
Quarter: 2013Q1

REPORT INFORMATION
  Report Type: Spontaneous
  Country: US (occurrence: None)
  Receive Date: 20120914
  Receipt Date: 20120914
  Transmission Date: 20140127
  Serious: Yes (Hospitalization)
  Sender: FDA-Public Use
  Company Number: JPI-P-017719

PATIENT
  Age: 67 Year
  Sex: Male
  Weight: 127.01 kg

DRUGS (1)
  1. XYREM [Suspect]
     Indication: NARCOLEPSY
     Route: 048
     Dates: start: 200503

REACTIONS (3)
  - Arthritis [None]
  - Tendon disorder [None]
  - Condition aggravated [None]
